FAERS Safety Report 6774105-4 (Version None)
Quarter: 2010Q2

REPORT INFORMATION
  Report Type: 
  Country: None (occurrence: None)
  Receive Date: 20100616
  Receipt Date: 20100616
  Transmission Date: 20101027
  Serious: No
  Sender: FDA-Public Use
  Company Number: None

PATIENT
  Age: 71 Year
  Sex: Male
  Weight: 83.9154 kg

DRUGS (1)
  1. LIPITOR [Suspect]
     Indication: BLOOD CHOLESTEROL INCREASED
     Dosage: ONE DAILY
     Dates: start: 20050101, end: 20100610

REACTIONS (5)
  - COUGH [None]
  - MIGRAINE [None]
  - MUSCLE FATIGUE [None]
  - PRODUCT QUALITY ISSUE [None]
  - TENDON PAIN [None]
